FAERS Safety Report 5920163-6 (Version None)
Quarter: 2008Q4

REPORT INFORMATION
  Report Type: 
  Country: None (occurrence: None)
  Receive Date: 20081015
  Receipt Date: 20081015
  Transmission Date: 20090506
  Serious: Yes (Hospitalization)
  Sender: FDA-Public Use
  Company Number: None

PATIENT
  Age: 37 Year
  Sex: Female
  Weight: 104.3273 kg

DRUGS (2)
  1. REQUIP [Suspect]
     Indication: RESTLESS LEGS SYNDROME
     Dosage: .25 MG 1 X A DAY AT BED PO
     Route: 048
     Dates: start: 20060416, end: 20070418
  2. TRAMADOL HCL [Suspect]
     Indication: NEUROPATHY PERIPHERAL
     Dosage: 50 MG 2 X A DAY PO
     Route: 048
     Dates: start: 20080914, end: 20080920

REACTIONS (2)
  - HEPATIC STEATOSIS [None]
  - PANCREATITIS ACUTE [None]
